FAERS Safety Report 11784377 (Version 4)
Quarter: 2017Q1

REPORT INFORMATION
  Report Type: Report from Study
  Country: BR (occurrence: BR)
  Receive Date: 20151129
  Receipt Date: 20170219
  Transmission Date: 20170428
  Serious: Yes (Other)
  Sender: FDA-Public Use
  Company Number: BR-ALEXION PHARMACEUTICALS INC-A201504694

PATIENT
  Age: 51 Year
  Sex: Female
  Weight: 60 kg

DRUGS (5)
  1. SOLIRIS [Suspect]
     Active Substance: ECULIZUMAB
     Dosage: 1200 MG,Q15D
     Route: 042
     Dates: start: 20150417
  2. SOLIRIS [Suspect]
     Active Substance: ECULIZUMAB
     Indication: HAEMOLYTIC URAEMIC SYNDROME
     Dosage: 900 MG, QW
     Route: 042
     Dates: start: 20150320, end: 20150410
  3. SOLIRIS [Suspect]
     Active Substance: ECULIZUMAB
     Dosage: UNK
     Route: 065
     Dates: start: 20150320
  4. HEPARINE                           /00027701/ [Concomitant]
     Active Substance: HEPARIN SODIUM
     Dosage: UNK
     Route: 065
  5. HEPARINE                           /00027701/ [Concomitant]
     Active Substance: HEPARIN SODIUM
     Indication: PRODUCT USED FOR UNKNOWN INDICATION
     Dosage: 0.2 MG, PER DIALYSIS
     Route: 065

REACTIONS (6)
  - Therapy cessation [Not Recovered/Not Resolved]
  - Platelet count decreased [Unknown]
  - Haematoma [Unknown]
  - Pain [Not Recovered/Not Resolved]
  - Gingival bleeding [Unknown]
  - Contusion [Recovered/Resolved]

NARRATIVE: CASE EVENT DATE: 20151113
